FAERS Safety Report 19166356 (Version 1)
Quarter: 2021Q2

REPORT INFORMATION
  Report Type: Spontaneous
  Country: GB (occurrence: GB)
  Receive Date: 20210422
  Receipt Date: 20210422
  Transmission Date: 20210717
  Serious: Yes (Death, Life-Threatening, Hospitalization, Other)
  Sender: FDA-Public Use
  Company Number: GB-AUROBINDO-AUR-APL-2021-016149

PATIENT
  Age: 30 Year
  Sex: Female

DRUGS (3)
  1. LOPERAMIDE [Suspect]
     Active Substance: LOPERAMIDE
     Indication: PRODUCT USED FOR UNKNOWN INDICATION
     Dosage: 100 MILLIGRAM
     Route: 065
  2. LOPERAMIDE [Suspect]
     Active Substance: LOPERAMIDE
     Dosage: 30 MILLIGRAM
     Route: 065
  3. METHYLPHENIDATE. [Concomitant]
     Active Substance: METHYLPHENIDATE
     Indication: PRODUCT USED FOR UNKNOWN INDICATION
     Dosage: UNK
     Route: 065

REACTIONS (15)
  - Intentional product misuse [Fatal]
  - Drug dependence [Fatal]
  - Bundle branch block right [Unknown]
  - Condition aggravated [Fatal]
  - Syncope [Unknown]
  - Drug abuse [Fatal]
  - Intentional overdose [Fatal]
  - Hyperventilation [Unknown]
  - Atrioventricular block first degree [Unknown]
  - Drug withdrawal syndrome [Unknown]
  - Unmasking of previously unidentified disease [Fatal]
  - Long QT syndrome congenital [Fatal]
  - Electrocardiogram QT prolonged [Recovered/Resolved]
  - Anxiety [Unknown]
  - Dyskinesia [Recovered/Resolved]
